FAERS Safety Report 6285111-0 (Version None)
Quarter: 2009Q3

REPORT INFORMATION
  Report Type: 
  Country: None (occurrence: None)
  Receive Date: 20090727
  Receipt Date: 20090720
  Transmission Date: 20100115
  Serious: Yes (Other)
  Sender: FDA-Public Use
  Company Number: GB-BRISTOL-MYERS SQUIBB COMPANY-14711311

PATIENT
  Age: 61 Year
  Weight: 80 kg

DRUGS (3)
  1. METFORMIN HCL [Suspect]
     Indication: GLUCOSE TOLERANCE IMPAIRED
     Route: 048
     Dates: start: 20090401, end: 20090521
  2. AMOXICILLIN [Concomitant]
     Indication: LOWER RESPIRATORY TRACT INFECTION
     Route: 048
     Dates: start: 20090501, end: 20090501
  3. COZAAR [Concomitant]
     Indication: HYPERTENSION
     Route: 048
     Dates: start: 20071201, end: 20090521

REACTIONS (1)
  - HEPATITIS ACUTE [None]
